FAERS Safety Report 24439715 (Version 1)
Quarter: 2024Q4

REPORT INFORMATION
  Report Type: Spontaneous
  Country: US (occurrence: US)
  Receive Date: 20241015
  Receipt Date: 20241015
  Transmission Date: 20250114
  Serious: No
  Sender: BIOMARIN
  Company Number: US-SA-2024SA283517

PATIENT

DRUGS (1)
  1. ALDURAZYME [Suspect]
     Active Substance: LARONIDASE
     Indication: Mucopolysaccharidosis I
     Dosage: 43.5 MG, QW
     Route: 042
     Dates: start: 202112

REACTIONS (1)
  - Supraventricular tachycardia [Unknown]
